FAERS Safety Report 9171544 (Version 4)
Quarter: 2013Q1

REPORT INFORMATION
  Report Type: Spontaneous
  Country: US (occurrence: None)
  Receive Date: 20130128
  Receipt Date: 20130307
  Transmission Date: 20140127
  Serious: Yes (Other)
  Sender: FDA-Public Use
  Company Number: 2013034506

PATIENT
  Age: 25 Year
  Sex: Male

DRUGS (1)
  1. HIZENTRA (IMMUNOGLOBULIN HUMAN NORMAL) [Suspect]
     Indication: IMMUNODEFICIENCY COMMON VARIABLE
     Dosage: 6 GM 3X/WEEK, 3-4 SITES OVER ONE HOUR SUBCUTANEOUS
     Route: 058

REACTIONS (7)
  - Infusion site scar [None]
  - Infusion site erythema [None]
  - Infusion site discolouration [None]
  - Infusion site scab [None]
  - Injection site haemorrhage [None]
  - Injection site nodule [None]
  - Infusion site extravasation [None]
